FAERS Safety Report 5363005-2 (Version None)
Quarter: 2007Q2

REPORT INFORMATION
  Report Type: 
  Country: None (occurrence: None)
  Receive Date: 20070615
  Receipt Date: 20070605
  Transmission Date: 20071010
  Serious: Yes (Other)
  Sender: FDA-Public Use
  Company Number: GXKR2007GB04868

PATIENT
  Age: 55 Year
  Sex: Male
  Weight: 75 kg

DRUGS (3)
  1. SIMVASTATIN [Suspect]
     Dosage: 40 MG, QD, UNKNOWN
  2. ATORVASTATIN CALCIUM [Concomitant]
  3. FLUOXETINE [Concomitant]

REACTIONS (2)
  - CONVULSION [None]
  - PARTIAL SEIZURES [None]
